FAERS Safety Report 7722586-1 (Version None)
Quarter: 2011Q3

REPORT INFORMATION
  Report Type: 
  Country: None (occurrence: None)
  Receive Date: 20110831
  Receipt Date: 20110830
  Transmission Date: 20111222
  Serious: Yes (Other)
  Sender: FDA-Public Use
  Company Number: DK-ABBOTT-11P-044-0732390-00

PATIENT
  Sex: Female

DRUGS (2)
  1. HUMIRA [Suspect]
     Indication: SPONDYLITIS
     Dates: start: 20070518
  2. SULFASALAZINE [Concomitant]
     Indication: SPONDYLITIS
     Dates: start: 20070518

REACTIONS (2)
  - CERVIX CARCINOMA [None]
  - VULVAR DYSPLASIA [None]
